FAERS Safety Report 6738169-6 (Version None)
Quarter: 2010Q2

REPORT INFORMATION
  Report Type: 
  Country: None (occurrence: None)
  Receive Date: 20100524
  Receipt Date: 20100513
  Transmission Date: 20101027
  Serious: Yes (Other)
  Sender: FDA-Public Use
  Company Number: CA-JNJFOC-20100506988

PATIENT
  Sex: Female
  Weight: 72 kg

DRUGS (3)
  1. REMICADE [Suspect]
     Indication: COLITIS
     Dosage: THERAPY DURATION ^TO PRESENT^
     Route: 042
  2. IMURAN [Concomitant]
  3. ASPIRIN [Concomitant]

REACTIONS (2)
  - PULMONARY EMBOLISM [None]
  - RASH [None]
